FAERS Safety Report 4888229-X (Version None)
Quarter: 2006Q1

REPORT INFORMATION
  Report Type: 
  Country: None (occurrence: None)
  Receive Date: 20060119
  Receipt Date: 20060105
  Transmission Date: 20060701
  Serious: Yes (Hospitalization)
  Sender: FDA-Public Use
  Company Number: 2006003407

PATIENT
  Age: 44 Year
  Sex: Female

DRUGS (1)
  1. SUDAFED PLUS (PSEUDOEPHEDRINE, CHLORPHENIRAMINE) [Suspect]
     Indication: UPPER RESPIRATORY TRACT INFECTION
     Dosage: 2-3 TIMES DAILY, ORAL
     Route: 048

REACTIONS (2)
  - COLITIS ISCHAEMIC [None]
  - ORTHOSTATIC HYPOTENSION [None]
